FAERS Safety Report 7322081-8 (Version None)
Quarter: 2011Q1

REPORT INFORMATION
  Report Type: 
  Country: None (occurrence: None)
  Receive Date: 20110228
  Receipt Date: 20110216
  Transmission Date: 20110831
  Serious: Yes (Hospitalization)
  Sender: FDA-Public Use
  Company Number: PHHY2011CH12382

PATIENT
  Age: 18 Year
  Sex: Female

DRUGS (12)
  1. SANDIMMUNE [Suspect]
     Indication: IMMUNOSUPPRESSION
     Dosage: 500 MG, UNK
     Route: 042
     Dates: start: 20110116, end: 20110120
  2. ALKERAN [Suspect]
     Dosage: 125 MG/D
     Route: 042
     Dates: start: 20110115, end: 20110116
  3. THYMOGLOBULIN [Concomitant]
     Dosage: 175 MG
     Route: 042
     Dates: start: 20110112, end: 20110116
  4. VALTREX [Concomitant]
     Dosage: 1000 MG/D
     Dates: start: 20110110, end: 20110120
  5. IMPLANON [Suspect]
     Dosage: 68 MG/3 YEARS
  6. FLAGYL [Concomitant]
     Dosage: 1500 MG/D
     Dates: start: 20110110, end: 20110204
  7. NEXIUM [Concomitant]
     Dosage: 40 MG/D
     Dates: start: 20110111, end: 20110204
  8. DIFLUCAN [Concomitant]
     Dosage: 200 MG/D
     Dates: start: 20110112, end: 20110129
  9. SOLU-MEDROL [Concomitant]
     Dosage: 250 MG/D
     Dates: start: 20110111, end: 20110114
  10. BACTRIM [Concomitant]
     Dosage: 320 MG/D
     Dates: start: 20110110
  11. FLUDARA [Suspect]
     Dosage: 50 MG/D
     Route: 042
     Dates: start: 20110112, end: 20110116
  12. PERFALGAN [Concomitant]
     Dosage: 1000 MG/D
     Route: 042
     Dates: start: 20110111, end: 20110119

REACTIONS (4)
  - BONE PAIN [None]
  - THROMBOTIC MICROANGIOPATHY [None]
  - OLIGURIA [None]
  - RENAL FAILURE ACUTE [None]
